FAERS Safety Report 9919009 (Version 1)
Quarter: 2014Q1

REPORT INFORMATION
  Report Type: Spontaneous
  Country: US (occurrence: US)
  Receive Date: 20140224
  Receipt Date: 20140224
  Transmission Date: 20141002
  Serious: No
  Sender: FDA-Public Use
  Company Number: US-BRISTOL-MYERS SQUIBB COMPANY-17440025

PATIENT
  Age: 52 Year
  Sex: Female

DRUGS (3)
  1. METFORMIN HCL [Suspect]
  2. CODEINE [Suspect]
  3. ACTOS [Suspect]

REACTIONS (1)
  - Hypersensitivity [Unknown]
